FAERS Safety Report 19056468 (Version 1)
Quarter: 2021Q1

REPORT INFORMATION
  Report Type: Spontaneous
  Country: US (occurrence: US)
  Receive Date: 20210325
  Receipt Date: 20210325
  Transmission Date: 20210420
  Serious: Yes (Other)
  Sender: FDA-Public Use
  Company Number: None

PATIENT
  Age: 74 Year
  Sex: Female
  Weight: 63.5 kg

DRUGS (3)
  1. GABAPENTIN ? 300 MG. CAP ASC [Suspect]
     Active Substance: GABAPENTIN
     Indication: PAIN IN EXTREMITY
     Dosage: ?          QUANTITY:21 DF DOSAGE FORM;?
     Route: 048
     Dates: start: 20201208, end: 20201215
  2. COD LIVER OIL [Concomitant]
     Active Substance: COD LIVER OIL
  3. AMLODIPINE [Concomitant]
     Active Substance: AMLODIPINE BESYLATE

REACTIONS (2)
  - Hypoaesthesia [None]
  - Inadequate analgesia [None]

NARRATIVE: CASE EVENT DATE: 20201216
